FAERS Safety Report 16074806 (Version 3)
Quarter: 2019Q3

REPORT INFORMATION
  Report Type: Report from Study
  Country: US (occurrence: US)
  Receive Date: 20190314
  Receipt Date: 20190718
  Transmission Date: 20191004
  Serious: Yes (Death, Hospitalization, Other)
  Sender: FDA-Public Use
  Company Number: US-PFIZER INC-2019107612

PATIENT
  Age: 54 Year
  Sex: Female

DRUGS (16)
  1. VITAMIN D3 [Concomitant]
     Active Substance: CHOLECALCIFEROL
     Dosage: 5000 IU, 1X/DAY
     Route: 048
  2. AMBIEN [Concomitant]
     Active Substance: ZOLPIDEM TARTRATE
     Indication: SLEEP DISORDER
     Dosage: 5 MG, AS NEEDED (1-2 TABLETS (5-10 MG TOTAL) BY MOUTH ONCE NIGHTLY AS NEEDED)
     Route: 048
     Dates: start: 20190225
  3. DULCOLAX NOS [Concomitant]
     Active Substance: BISACODYL OR DOCUSATE SODIUM
     Dosage: 10 MG, AS NEEDED (PLACE 1 SUPPOSITORY (10 MG TOTAL) RECTALLY DAILY AS NEEDED)
     Route: 054
     Dates: start: 20190217
  4. MAXALT-MLT [Concomitant]
     Active Substance: RIZATRIPTAN BENZOATE
     Indication: MIGRAINE
     Dosage: 5 MG, AS NEEDED (1-2 TABLETS PO AS NEEDED/ MAY REPEAT IN 2 HOURS. NOT TO EXCEED 30 MG IN 24 HOURS)
     Route: 048
  5. ARMOUR THYROID [Concomitant]
     Active Substance: THYROID, PORCINE
     Dosage: 90 MG, 1X/DAY
     Route: 048
     Dates: start: 20190410
  6. ATIVAN [Concomitant]
     Active Substance: LORAZEPAM
     Indication: ANXIETY
     Dosage: 1 MG, AS NEEDED
     Route: 048
     Dates: start: 20190327
  7. ATIVAN [Concomitant]
     Active Substance: LORAZEPAM
     Indication: NAUSEA
  8. DILAUDID [Concomitant]
     Active Substance: HYDROMORPHONE HYDROCHLORIDE
     Indication: PAIN
     Dosage: 2 MG, AS NEEDED (TAKE 1 TABLET (2 MG TOTAL) BY MOUTH ONCE EVERY 4 (FOUR) HOURS AS NEEDED)
     Route: 048
     Dates: start: 20190217
  9. REGLAN [Concomitant]
     Active Substance: METOCLOPRAMIDE HYDROCHLORIDE
     Dosage: 5 MG, 3X/DAY(TAKE 5 MG 3 TIMES A DAY)
     Dates: start: 20190320
  10. IBRANCE [Suspect]
     Active Substance: PALBOCICLIB
     Indication: BREAST CANCER METASTATIC
     Dosage: 125 MG, CYCLIC (DAILY FOR 21 DAYS ON, 7 DAYS OFF)
     Route: 048
     Dates: start: 20190217
  11. LETROZOLE. [Concomitant]
     Active Substance: LETROZOLE
     Indication: BREAST CANCER METASTATIC
     Dosage: 2.5 MG, DAILY
     Route: 048
     Dates: start: 20190204, end: 20190407
  12. DURAGESIC [Concomitant]
     Active Substance: FENTANYL
     Dosage: UNK (PLACE 1 PATCH ONTO THE SKIN EVERY THIRD DAY. MAX DAILY AMOUNT: 1 PATCH - TRANSDERMAL)
     Route: 062
     Dates: start: 20190319
  13. FEMARA [Concomitant]
     Active Substance: LETROZOLE
     Dosage: 2.5 MG, 1X/DAY
     Route: 048
     Dates: start: 20190204
  14. KLOR-CON [Concomitant]
     Active Substance: POTASSIUM CHLORIDE
     Dosage: 20 MEQ, DAILY
     Route: 048
     Dates: start: 20190404
  15. IBRANCE [Suspect]
     Active Substance: PALBOCICLIB
     Dosage: 75 MG, CYCLIC(TAKE 75 MG BY MOUTH ONCE DAILY. 21 OUT OF 28 DAYS)
     Route: 048
     Dates: start: 20190403
  16. IBRANCE [Suspect]
     Active Substance: PALBOCICLIB
     Dosage: 25 MG, UNK
     Route: 048

REACTIONS (12)
  - Neoplasm progression [Fatal]
  - Neutropenia [Unknown]
  - Nausea [Not Recovered/Not Resolved]
  - Pancytopenia [Unknown]
  - Dehydration [Unknown]
  - Thrombocytopenia [Unknown]
  - Leukopenia [Recovered/Resolved]
  - Insomnia [Unknown]
  - Product dose omission [Unknown]
  - Vomiting [Not Recovered/Not Resolved]
  - Hypokalaemia [Unknown]
  - Hyponatraemia [Unknown]

NARRATIVE: CASE EVENT DATE: 20190329
